FAERS Safety Report 11512824 (Version 1)
Quarter: 2015Q3

REPORT INFORMATION
  Report Type: Spontaneous
  Country: US (occurrence: US)
  Receive Date: 20150903
  Receipt Date: 20150903
  Transmission Date: 20151125
  Serious: No
  Sender: FDA-Public Use
  Company Number: US-ELI_LILLY_AND_COMPANY-US201004001930

PATIENT
  Sex: Female

DRUGS (17)
  1. HUMALOG [Suspect]
     Active Substance: INSULIN LISPRO
     Dosage: 10 U, OTHER
     Dates: start: 2005
  2. HUMALOG [Suspect]
     Active Substance: INSULIN LISPRO
     Dosage: 16 U, EACH EVENING
     Dates: start: 2005
  3. HUMALOG [Suspect]
     Active Substance: INSULIN LISPRO
     Dosage: 5 U, OTHER
     Dates: start: 2005
  4. ALOPURINOL [Concomitant]
     Active Substance: ALLOPURINOL
  5. METOPROLOL [Concomitant]
     Active Substance: METOPROLOL
  6. HUMALOG [Suspect]
     Active Substance: INSULIN LISPRO
     Dosage: 8 U, OTHER
     Dates: start: 2005
  7. HUMALOG [Suspect]
     Active Substance: INSULIN LISPRO
     Dosage: UNK, AS NEEDED
     Dates: start: 2005
  8. NORVASC [Concomitant]
     Active Substance: AMLODIPINE BESYLATE
  9. WARFARIN [Concomitant]
     Active Substance: WARFARIN
  10. JANUVIA [Concomitant]
     Active Substance: SITAGLIPTIN PHOSPHATE
  11. HUMALOG [Suspect]
     Active Substance: INSULIN LISPRO
     Indication: TYPE 2 DIABETES MELLITUS
     Dosage: 16 U, EACH MORNING
     Dates: start: 2005
  12. COZAAR [Concomitant]
     Active Substance: LOSARTAN POTASSIUM
  13. FUROSEMIDE. [Concomitant]
     Active Substance: FUROSEMIDE
  14. VITAMINS [Concomitant]
     Active Substance: VITAMINS
  15. HUMALOG [Suspect]
     Active Substance: INSULIN LISPRO
  16. LIPITOR [Concomitant]
     Active Substance: ATORVASTATIN CALCIUM
  17. LANTUS [Concomitant]
     Active Substance: INSULIN GLARGINE
     Dosage: 58 U, DAILY (1/D)

REACTIONS (6)
  - Back injury [Unknown]
  - Incorrect drug dosage form administered [Recovered/Resolved]
  - Back injury [Not Recovered/Not Resolved]
  - Back pain [Unknown]
  - Product label on wrong product [Recovered/Resolved]
  - Back pain [Not Recovered/Not Resolved]

NARRATIVE: CASE EVENT DATE: 2009
